FAERS Safety Report 22590085 (Version 3)
Quarter: 2024Q4

REPORT INFORMATION
  Report Type: Spontaneous
  Country: US (occurrence: US)
  Receive Date: 20230612
  Receipt Date: 20241022
  Transmission Date: 20250114
  Serious: No
  Sender: SANOFI AVENTIS
  Company Number: US-SA-SAC20230609000114

PATIENT
  Age: 62 Year
  Sex: Female

DRUGS (1)
  1. DUPIXENT [Suspect]
     Active Substance: DUPILUMAB
     Indication: Nasal polyps
     Dosage: 300 MG, QOW
     Route: 058

REACTIONS (6)
  - Blister [Unknown]
  - Erythema [Unknown]
  - Sensitive skin [Unknown]
  - Sinusitis [Unknown]
  - Injection site erythema [Unknown]
  - Product storage error [Unknown]

NARRATIVE: CASE EVENT DATE: 20240401
